FAERS Safety Report 21801613 (Version 1)
Quarter: 2022Q4

REPORT INFORMATION
  Report Type: Spontaneous
  Country: US (occurrence: US)
  Receive Date: 20221230
  Receipt Date: 20221230
  Transmission Date: 20230113
  Serious: Yes (Hospitalization, Other)
  Sender: FDA-Public Use
  Company Number: US-ANIPHARMA-2022-US-030073

PATIENT
  Age: 87 Year
  Sex: Female

DRUGS (6)
  1. PROPRANOLOL HYDROCHLORIDE [Suspect]
     Active Substance: PROPRANOLOL HYDROCHLORIDE
     Indication: Product used for unknown indication
     Dosage: 160 (UNITS UNKNOWN), ONE DOSE OF 320 (UNITS UNKNOWN)
     Route: 048
  2. TYVASO DPI [Suspect]
     Active Substance: TREPROSTINIL
     Dosage: 48 MCG, QID, INHALATION
     Route: 055
     Dates: start: 20221126, end: 2022
  3. AMBRISENTAN [Suspect]
     Active Substance: AMBRISENTAN
     Dosage: 10 MG QD
     Route: 065
     Dates: start: 20200511
  4. TYVASO DPI [Suspect]
     Active Substance: TREPROSTINIL
     Dosage: UNKNOWN, INHALATION
     Route: 055
     Dates: start: 202210
  5. TYVASO DPI [Suspect]
     Active Substance: TREPROSTINIL
     Dosage: 16 MCG,QID, INHALATION
     Route: 055
     Dates: start: 2022
  6. TYVASO DPI [Suspect]
     Active Substance: TREPROSTINIL
     Dosage: 32 MCG, INHALATION
     Route: 055

REACTIONS (7)
  - Cardiac failure chronic [Unknown]
  - Cough [Unknown]
  - Oedema peripheral [Unknown]
  - Brain natriuretic peptide increased [Unknown]
  - Confusional state [Unknown]
  - Amnesia [Unknown]
  - Accidental overdose [Unknown]

NARRATIVE: CASE EVENT DATE: 20221101
